FAERS Safety Report 5940103-3 (Version None)
Quarter: 2008Q4

REPORT INFORMATION
  Report Type: 
  Country: None (occurrence: None)
  Receive Date: 20081030
  Receipt Date: 20081024
  Transmission Date: 20090506
  Serious: Yes (Hospitalization)
  Sender: FDA-Public Use
  Company Number: 2008BI028757

PATIENT
  Age: 59 Year
  Sex: Female

DRUGS (6)
  1. TYSABRI [Suspect]
     Indication: MULTIPLE SCLEROSIS
     Dosage: 300 MG;QM;IV
     Route: 042
     Dates: start: 20070820, end: 20080929
  2. CON MEDS [Concomitant]
  3. AVONEX (PREV.) [Concomitant]
  4. BETASERON (PREV.) [Concomitant]
  5. COPAXONE (PREV.) [Concomitant]
  6. METHOTREXATE (PREV.) [Concomitant]

REACTIONS (4)
  - ARTHRALGIA [None]
  - DIALYSIS [None]
  - MYALGIA [None]
  - PROGRESSIVE MULTIFOCAL LEUKOENCEPHALOPATHY [None]
